FAERS Safety Report 14546760 (Version 2)
Quarter: 2018Q1

REPORT INFORMATION
  Report Type: Spontaneous
  Country: FR (occurrence: FR)
  Receive Date: 20180219
  Receipt Date: 20180321
  Transmission Date: 20180509
  Serious: Yes (Hospitalization)
  Sender: FDA-Public Use
  Company Number: FR-009507513-1802FRA006601

PATIENT
  Age: 57 Year
  Sex: Male
  Weight: 79 kg

DRUGS (10)
  1. TRIATEC (RAMIPRIL) [Concomitant]
     Active Substance: RAMIPRIL
     Dosage: 1.25 MG QD
     Route: 048
  2. TANGANIL [Concomitant]
     Active Substance: ACETYLLEUCINE
     Dosage: 1000 MG, QD
     Route: 048
  3. ZOPICLONE [Concomitant]
     Active Substance: ZOPICLONE
     Dosage: 20 MG, QD
     Route: 048
  4. KEYTRUDA [Suspect]
     Active Substance: PEMBROLIZUMAB
     Indication: MALIGNANT MELANOMA
     Dosage: 160 MG, CYCLICAL
     Route: 041
     Dates: start: 20170418, end: 20171115
  5. LAMICTAL [Concomitant]
     Active Substance: LAMOTRIGINE
     Dosage: 200 MG, QD
     Route: 048
  6. ASPIRIN PROTECT [Concomitant]
     Active Substance: ASPIRIN
     Dosage: 200 MG, QD
     Route: 048
  7. CRESTOR [Concomitant]
     Active Substance: ROSUVASTATIN CALCIUM
     Dosage: 10 MG, QD
     Route: 048
  8. XANAX [Concomitant]
     Active Substance: ALPRAZOLAM
     Dosage: MAXIMUM 4 PER DAY; AS NECESSARY
     Route: 048
  9. TRIMEBUTINE [Concomitant]
     Active Substance: TRIMEBUTINE
     Dosage: 1 TO 3 IN CASE OF PAIN; AS NECESSARY
     Route: 048
  10. INEXIUM (ESOMEPRAZOLE MAGNESIUM) [Concomitant]
     Active Substance: ESOMEPRAZOLE MAGNESIUM
     Dosage: 40 MG ,QD
     Route: 048

REACTIONS (2)
  - Pancreatitis acute [Recovered/Resolved]
  - Cholestatic liver injury [Not Recovered/Not Resolved]

NARRATIVE: CASE EVENT DATE: 20171127
